FAERS Safety Report 21985802 (Version 1)
Quarter: 2023Q1

REPORT INFORMATION
  Report Type: Report from Study
  Country: US (occurrence: None)
  Receive Date: 20230213
  Receipt Date: 20230213
  Transmission Date: 20230418
  Serious: Yes (Death)
  Sender: FDA-Public Use
  Company Number: 2023A035903

PATIENT
  Sex: Male

DRUGS (1)
  1. IMFINZI [Suspect]
     Active Substance: DURVALUMAB
     Dosage: 120MG/2.4ML VIAL (INFUSE 10MG/KG INTRAVENOUSLY OVER 60 MINUTES EVERY TWO WEEKS)
     Route: 042

REACTIONS (1)
  - Death [Fatal]
